FAERS Safety Report 10080694 (Version 2)
Quarter: 2014Q2

REPORT INFORMATION
  Report Type: Spontaneous
  Country: US (occurrence: US)
  Receive Date: 20140416
  Receipt Date: 20140515
  Transmission Date: 20141212
  Serious: No
  Sender: FDA-Public Use
  Company Number: US-JNJFOC-20140310994

PATIENT
  Sex: Male

DRUGS (9)
  1. INVEGA SUSTENNA [Suspect]
     Indication: PRODUCT USED FOR UNKNOWN INDICATION
     Route: 030
  2. INVEGA SUSTENNA [Suspect]
     Indication: PRODUCT USED FOR UNKNOWN INDICATION
     Route: 030
     Dates: start: 20140318
  3. INVEGA SUSTENNA [Suspect]
     Indication: PRODUCT USED FOR UNKNOWN INDICATION
     Route: 030
     Dates: start: 20140304
  4. WELLBUTRIN [Concomitant]
     Indication: DEPRESSION
     Route: 065
  5. ANAFRANIL [Concomitant]
     Indication: OBSESSIVE-COMPULSIVE DISORDER
     Route: 065
  6. LIPITOR [Concomitant]
     Indication: BLOOD CHOLESTEROL
     Route: 065
  7. SYNTHROID [Concomitant]
     Indication: HYPOTHYROIDISM
     Route: 065
  8. TOPROL [Concomitant]
     Indication: HYPERTENSION
     Route: 066
  9. LITHIUM CARBONATE [Concomitant]
     Indication: AFFECTIVE DISORDER
     Route: 065

REACTIONS (1)
  - Drug dose omission [Recovered/Resolved]
